FAERS Safety Report 4713752-8 (Version None)
Quarter: 2005Q3

REPORT INFORMATION
  Report Type: 
  Country: None (occurrence: None)
  Receive Date: 20050713
  Receipt Date: 20050701
  Transmission Date: 20060218
  Serious: Yes (Hospitalization)
  Sender: FDA-Public Use
  Company Number: DE-MERCK-0507DEU00010

PATIENT
  Sex: Female

DRUGS (12)
  1. FOSAMAX [Suspect]
     Route: 048
     Dates: start: 20041201, end: 20050501
  2. FENTANYL [Concomitant]
     Route: 065
  3. FUROSEMIDE [Concomitant]
     Route: 048
  4. METOPROLOL [Concomitant]
     Route: 048
  5. LISINOPRIL [Concomitant]
     Route: 048
  6. ASPIRIN [Concomitant]
     Route: 048
  7. ISOSORBIDE DINITRATE [Concomitant]
     Route: 048
  8. DIPYRONE [Concomitant]
     Route: 048
  9. DOXEPIN HYDROCHLORIDE [Concomitant]
     Route: 048
  10. CALCIUM (UNSPECIFIED) AND VITAMIN D (UNSPECIFIED) [Concomitant]
     Route: 048
  11. ALLOPURINOL [Concomitant]
     Route: 048
  12. DICLOFENAC [Concomitant]
     Route: 030

REACTIONS (3)
  - CEREBRAL ARTERY OCCLUSION [None]
  - CONFUSIONAL STATE [None]
  - SUBILEUS [None]
